FAERS Safety Report 5475898-9 (Version None)
Quarter: 2007Q3

REPORT INFORMATION
  Report Type: 
  Country: None (occurrence: None)
  Receive Date: 20070924
  Receipt Date: 20060821
  Transmission Date: 20080115
  Serious: Yes (Hospitalization)
  Sender: FDA-Public Use
  Company Number: 2006US003283

PATIENT
  Sex: Female

DRUGS (2)
  1. ALOXI [Suspect]
     Indication: PROPHYLAXIS OF NAUSEA AND VOMITING
     Dosage: 0.25 MG, SINGLE, INTRAVENOUS
     Route: 042
     Dates: start: 20060101, end: 20060101
  2. DECADRON [Concomitant]

REACTIONS (3)
  - DRUG EFFECT DECREASED [None]
  - NAUSEA [None]
  - VOMITING [None]
